FAERS Safety Report 21493962 (Version 2)
Quarter: 2022Q4

REPORT INFORMATION
  Report Type: Spontaneous
  Country: GB (occurrence: GB)
  Receive Date: 20221021
  Receipt Date: 20221214
  Transmission Date: 20230113
  Serious: Yes (Other)
  Sender: FDA-Public Use
  Company Number: GB-AMGEN-GBRSP2022178359

PATIENT
  Age: 37 Year
  Sex: Female

DRUGS (1)
  1. ADALIMUMAB [Suspect]
     Active Substance: ADALIMUMAB
     Indication: Crohn^s disease
     Dosage: 40 MILLIGRAM, QWK
     Route: 058
     Dates: start: 20191213

REACTIONS (3)
  - Crohn^s disease [Unknown]
  - Abortion spontaneous [Unknown]
  - COVID-19 [Recovered/Resolved]

NARRATIVE: CASE EVENT DATE: 20220901
